FAERS Safety Report 4396303-X (Version None)
Quarter: 2004Q3

REPORT INFORMATION
  Report Type: 
  Country: None (occurrence: None)
  Receive Date: 20040713
  Receipt Date: 20040709
  Transmission Date: 20050211
  Serious: No
  Sender: FDA-Public Use
  Company Number: US-GLAXOSMITHKLINE-A0517688A

PATIENT

DRUGS (1)
  1. WELLBUTRIN [Suspect]
     Indication: ILL-DEFINED DISORDER
     Dosage: 900MG PER DAY
     Route: 048

REACTIONS (2)
  - ADVERSE EVENT [None]
  - MEDICATION ERROR [None]
